FAERS Safety Report 8511343-4 (Version None)
Quarter: 2012Q3

REPORT INFORMATION
  Report Type: 
  Country: None (occurrence: None)
  Receive Date: 20120716
  Receipt Date: 20120710
  Transmission Date: 20120928
  Serious: Yes (Other)
  Sender: FDA-Public Use
  Company Number: GB-ASTELLAS-2012EU004206

PATIENT
  Sex: Female
  Weight: 78.005 kg

DRUGS (3)
  1. VESICARE [Suspect]
     Indication: URGE INCONTINENCE
     Dosage: 5 MG, UID/QD
     Route: 048
     Dates: start: 20120203, end: 20120607
  2. ZOLON [Concomitant]
     Indication: GASTRIC ULCER
     Dosage: 30 MG, BID
     Route: 048
  3. LEVOTHYROXINE SODIUM [Concomitant]
     Indication: HYPOTHYROIDISM
     Dosage: 125 MG, UID/QD
     Route: 048

REACTIONS (3)
  - HIATUS HERNIA [None]
  - DRY MOUTH [None]
  - GASTRITIS [None]
